FAERS Safety Report 9458224 (Version 2)
Quarter: 2013Q3

REPORT INFORMATION
  Report Type: Spontaneous
  Country: FR (occurrence: None)
  Receive Date: 20130812
  Receipt Date: 20130912
  Transmission Date: 20140515
  Serious: Yes (Life-Threatening, Hospitalization)
  Sender: FDA-Public Use
  Company Number: AUR-APL-2013-06553

PATIENT
  Age: 86 Year
  Sex: Female
  Weight: 59 kg

DRUGS (4)
  1. METFORMIN [Suspect]
     Indication: PRODUCT USED FOR UNKNOWN INDICATION
  2. TAFAMIDIS MEGLUMINE [Suspect]
     Indication: HEREDITARY NEUROPATHIC AMYLOIDOSIS
     Dates: start: 20100127, end: 20100331
  3. AMAREL [Suspect]
     Indication: PRODUCT USED FOR UNKNOWN INDICATION
     Route: 048
  4. AMITRIPTYLINE HYDROCHLORIDE [Suspect]
     Indication: PRODUCT USED FOR UNKNOWN INDICATION
     Route: 048

REACTIONS (6)
  - Pyelonephritis acute [None]
  - Renal failure acute [None]
  - Bacillus test positive [None]
  - Staphylococcal sepsis [None]
  - Endocarditis [None]
  - Device related infection [None]
